FAERS Safety Report 5299272-3 (Version None)
Quarter: 2007Q2

REPORT INFORMATION
  Report Type: 
  Country: None (occurrence: None)
  Receive Date: 20070411
  Receipt Date: 20070411
  Transmission Date: 20071010
  Serious: No
  Sender: FDA-Public Use
  Company Number: None

PATIENT
  Sex: Female

DRUGS (1)
  1. ULTRAVATE [Suspect]
     Indication: RASH PUSTULAR
     Dosage: TOPICAL BID
     Route: 061

REACTIONS (3)
  - CONDITION AGGRAVATED [None]
  - PHARMACEUTICAL PRODUCT COMPLAINT [None]
  - PUSTULAR PSORIASIS [None]
